FAERS Safety Report 13033998 (Version 1)
Quarter: 2016Q4

REPORT INFORMATION
  Report Type: Spontaneous
  Country: US (occurrence: US)
  Receive Date: 20161215
  Receipt Date: 20161215
  Transmission Date: 20170207
  Serious: Yes (Hospitalization)
  Sender: FDA-Public Use
  Company Number: None

PATIENT
  Age: 54 Year
  Sex: Male

DRUGS (3)
  1. GLEEVEC [Suspect]
     Active Substance: IMATINIB MESYLATE
     Indication: NEUROFIBROMATOSIS
     Route: 048
     Dates: start: 201609
  2. METFORMIN [Concomitant]
     Active Substance: METFORMIN HYDROCHLORIDE
  3. LISINOPRIL. [Concomitant]
     Active Substance: LISINOPRIL

REACTIONS (2)
  - Scar [None]
  - Neoplasm progression [None]

NARRATIVE: CASE EVENT DATE: 20161023
